FAERS Safety Report 17066418 (Version 1)
Quarter: 2019Q4

REPORT INFORMATION
  Report Type: Spontaneous
  Country: US (occurrence: US)
  Receive Date: 20191122
  Receipt Date: 20191122
  Transmission Date: 20200122
  Serious: Yes (Other)
  Sender: FDA-Public Use
  Company Number: US-BIODELIVERY SCIENCES INTERNATIONAL-2019BDSI0098

PATIENT
  Age: 49 Year
  Sex: Female
  Weight: 52.66 kg

DRUGS (4)
  1. LAMOTRIGINE. [Concomitant]
     Active Substance: LAMOTRIGINE
     Indication: DEPRESSION
     Dosage: UNKNOWN
     Route: 048
  2. TRAZODONE [Concomitant]
     Active Substance: TRAZODONE HYDROCHLORIDE
     Indication: INSOMNIA
     Route: 048
  3. BUPRENORPHINE. [Suspect]
     Active Substance: BUPRENORPHINE
     Indication: PAIN
     Route: 002
     Dates: start: 201901, end: 201902
  4. BUPRENORPHINE. [Suspect]
     Active Substance: BUPRENORPHINE
     Route: 002
     Dates: start: 201902

REACTIONS (1)
  - Drug withdrawal syndrome [Not Recovered/Not Resolved]

NARRATIVE: CASE EVENT DATE: 201901
